FAERS Safety Report 5532653-9 (Version None)
Quarter: 2007Q4

REPORT INFORMATION
  Report Type: 
  Country: None (occurrence: None)
  Receive Date: 20071120
  Receipt Date: 20070730
  Transmission Date: 20080405
  Serious: No
  Sender: FDA-Public Use
  Company Number: WAES 0708USA00023

PATIENT
  Age: 73 Year
  Sex: Female

DRUGS (8)
  1. JANUVIA [Suspect]
     Indication: DIABETES MELLITUS
     Dosage: 100 MG/DAILY/PO
     Route: 048
     Dates: start: 20070615
  2. ACIPHEX [Concomitant]
  3. ECOTRIN [Concomitant]
  4. LIPITOR [Concomitant]
  5. ZETIA [Concomitant]
  6. ALBUTEROL [Concomitant]
  7. ATENOLOL [Concomitant]
  8. IMIPRAMINE HYDROCHLORIDE [Concomitant]

REACTIONS (3)
  - ANXIETY [None]
  - HYPERVENTILATION [None]
  - SENSATION OF FOREIGN BODY [None]
